FAERS Safety Report 4699214-5 (Version None)
Quarter: 2005Q2

REPORT INFORMATION
  Report Type: 
  Country: None (occurrence: None)
  Receive Date: 20050622
  Receipt Date: 20050609
  Transmission Date: 20051028
  Serious: Yes (Hospitalization)
  Sender: FDA-Public Use
  Company Number: 2005087937

PATIENT
  Age: 16 Month
  Sex: Male

DRUGS (1)
  1. ZIPRASIDONE (CAPS) (ZIPRASIDONE) [Suspect]
     Indication: ILL-DEFINED DISORDER
     Dosage: (1 IN 1 TOTAL), ORAL
     Route: 048
     Dates: start: 20050608, end: 20050608

REACTIONS (3)
  - ACCIDENTAL EXPOSURE [None]
  - IRRITABILITY [None]
  - PYREXIA [None]
